FAERS Safety Report 6111232-9 (Version None)
Quarter: 2009Q1

REPORT INFORMATION
  Report Type: 
  Country: None (occurrence: None)
  Receive Date: 20090311
  Receipt Date: 20090226
  Transmission Date: 20090719
  Serious: Yes (Other)
  Sender: FDA-Public Use
  Company Number: PHHY2009BR07160

PATIENT
  Age: 63 Year
  Sex: Female

DRUGS (2)
  1. DIOVAN [Suspect]
     Indication: HYPERTENSION
     Dosage: 160 MG, 0.5 DF
     Route: 048
     Dates: start: 20080801
  2. DIOVAN [Suspect]
     Dosage: 160 MG, 1 DF
     Route: 048
     Dates: start: 20090201

REACTIONS (2)
  - HYPERTENSION [None]
  - JOINT EFFUSION [None]
